FAERS Safety Report 13793832 (Version 2)
Quarter: 2017Q3

REPORT INFORMATION
  Report Type: Spontaneous
  Country: US (occurrence: US)
  Receive Date: 20170726
  Receipt Date: 20170802
  Transmission Date: 20171127
  Serious: Yes (Hospitalization)
  Sender: FDA-Public Use
  Company Number: US-ALVOGEN-2017-ALVOGEN-092766

PATIENT
  Age: 72 Year
  Sex: Male
  Weight: 93.44 kg

DRUGS (11)
  1. ICAPS AREDS [Concomitant]
     Active Substance: MINERALS\VITAMINS
     Indication: EYE DISORDER
     Dosage: 2 CAPSULES FOR EYE HEALTH, HE JUST STARTED TAKING IT FOR 3 MONTHS (NO DOSAGE)
  2. NORVASC [Concomitant]
     Active Substance: AMLODIPINE BESYLATE
     Indication: HYPERTENSION
  3. TOPROL XL [Suspect]
     Active Substance: METOPROLOL SUCCINATE
     Indication: CARDIAC DISORDER
     Route: 048
  4. BRILINTA [Suspect]
     Active Substance: TICAGRELOR
     Indication: STENT PLACEMENT
     Route: 048
     Dates: start: 20170501, end: 20170526
  5. LISINOPRIL. [Suspect]
     Active Substance: LISINOPRIL
     Indication: CARDIAC DISORDER
     Route: 048
  6. ATORVASTATIN CALCIUM. [Concomitant]
     Active Substance: ATORVASTATIN CALCIUM
     Indication: BLOOD CHOLESTEROL
     Route: 048
  7. METFORMIN [Concomitant]
     Active Substance: METFORMIN HYDROCHLORIDE
     Indication: TYPE 2 DIABETES MELLITUS
     Route: 048
  8. COQ 10 [Concomitant]
     Active Substance: UBIDECARENONE
     Indication: CARDIAC DISORDER
     Route: 048
  9. GLIPIZIDE. [Concomitant]
     Active Substance: GLIPIZIDE
     Indication: TYPE 2 DIABETES MELLITUS
     Dosage: PRESCRIBED FOR ABOUT 10 TO 12 YEARS, 10 MG TWICE A DAY
     Route: 048
  10. ASPIRIN. [Concomitant]
     Active Substance: ASPIRIN
     Indication: MYOCARDIAL INFARCTION
  11. ATORVASTATIN CALCIUM. [Concomitant]
     Active Substance: ATORVASTATIN CALCIUM
     Indication: MYOCARDIAL INFARCTION
     Route: 048

REACTIONS (6)
  - Haemoglobin increased [Unknown]
  - Fungal infection [Recovered/Resolved]
  - Skin exfoliation [Unknown]
  - Haematochezia [Unknown]
  - Dyspnoea [Unknown]
  - Hypersensitivity [Unknown]

NARRATIVE: CASE EVENT DATE: 20170519
